FAERS Safety Report 21477681 (Version 2)
Quarter: 2022Q4

REPORT INFORMATION
  Report Type: Report from Study
  Country: US (occurrence: US)
  Receive Date: 20221019
  Receipt Date: 20221122
  Transmission Date: 20230112
  Serious: No
  Sender: FDA-Public Use
  Company Number: US-ABBVIE-4155693

PATIENT
  Age: 64 Year
  Sex: Female
  Weight: 61.234 kg

DRUGS (7)
  1. VENCLEXTA [Suspect]
     Active Substance: VENETOCLAX
     Indication: Ovarian cancer
     Dosage: FORM STRENGTH 400 MILLIGRAM ONGOING
     Route: 048
     Dates: start: 20220801
  2. LEVOTHYROXINE [Concomitant]
     Active Substance: LEVOTHYROXINE
     Indication: Product used for unknown indication
     Route: 048
  3. linothyronine [Concomitant]
     Indication: Product used for unknown indication
     Route: 048
  4. METFORMIN [Concomitant]
     Active Substance: METFORMIN HYDROCHLORIDE
     Indication: Product used for unknown indication
     Dosage: 500MG
     Route: 048
  5. ONDANSETRON [Concomitant]
     Active Substance: ONDANSETRON
     Indication: Vomiting
     Route: 048
  6. Calcium OR [Concomitant]
     Indication: Product used for unknown indication
     Route: 048
  7. Coenzyme Q10 OR [Concomitant]
     Indication: Product used for unknown indication
     Route: 048

REACTIONS (1)
  - Off label use [Unknown]

NARRATIVE: CASE EVENT DATE: 20220801
